FAERS Safety Report 6690708-X (Version None)
Quarter: 2010Q2

REPORT INFORMATION
  Report Type: 
  Country: None (occurrence: None)
  Receive Date: 20100420
  Receipt Date: 20100420
  Transmission Date: 20101027
  Serious: Yes (Hospitalization)
  Sender: FDA-Public Use
  Company Number: None

PATIENT
  Age: 78 Year
  Sex: Male
  Weight: 71.4 kg

DRUGS (1)
  1. DIGOXIN [Suspect]
     Indication: THERAPEUTIC AGENT TOXICITY
     Dosage: 0.125 MG EVERY DAY PO
     Route: 048
     Dates: start: 20020701, end: 20100413

REACTIONS (5)
  - BRADYCARDIA [None]
  - DIZZINESS [None]
  - HYPERGLYCAEMIA [None]
  - HYPERKALAEMIA [None]
  - HYPOTENSION [None]
